FAERS Safety Report 20691878 (Version 3)
Quarter: 2023Q1

REPORT INFORMATION
  Report Type: Spontaneous
  Country: AT (occurrence: None)
  Receive Date: 20220408
  Receipt Date: 20230321
  Transmission Date: 20230418
  Serious: Yes (Death, Life-Threatening, Hospitalization, Other)
  Sender: FDA-Public Use
  Company Number: AT-ROCHE-3068416

PATIENT
  Age: 70 Year
  Sex: Male

DRUGS (2)
  1. GAVRETO [Suspect]
     Active Substance: PRALSETINIB
     Indication: Non-small cell lung cancer
     Route: 048
     Dates: start: 20220128, end: 20220322
  2. CANDESARTAN [Concomitant]
     Active Substance: CANDESARTAN
     Indication: Hypertension
     Route: 048

REACTIONS (13)
  - Endotracheal intubation [Unknown]
  - Bacterial disease carrier [Unknown]
  - Opportunistic infection [Recovered/Resolved with Sequelae]
  - Neuropathy peripheral [Unknown]
  - Fatigue [Unknown]
  - Diarrhoea [Unknown]
  - Pyrexia [Unknown]
  - Moraxella test positive [Unknown]
  - Pneumocystis test positive [Unknown]
  - Respiratory failure [Unknown]
  - Gastric ulcer haemorrhage [Unknown]
  - Neoplasm progression [Unknown]
  - Death [Fatal]

NARRATIVE: CASE EVENT DATE: 20220322
